FAERS Safety Report 14227456 (Version 1)
Quarter: 2017Q4

REPORT INFORMATION
  Report Type: Spontaneous
  Country: US (occurrence: US)
  Receive Date: 20171127
  Receipt Date: 20171127
  Transmission Date: 20180321
  Serious: Yes (Death)
  Sender: FDA-Public Use
  Company Number: US-PFIZER INC-2017506054

PATIENT
  Age: 32 Year
  Sex: Female

DRUGS (2)
  1. SUBSYS [Interacting]
     Active Substance: FENTANYL
     Indication: PAIN
     Dosage: UNK
  2. XANAX [Suspect]
     Active Substance: ALPRAZOLAM
     Indication: SLEEP DISORDER
     Dosage: UNK

REACTIONS (2)
  - Drug interaction [Fatal]
  - Overdose [Fatal]
